FAERS Safety Report 22354831 (Version 1)
Quarter: 2023Q2

REPORT INFORMATION
  Report Type: Spontaneous
  Country: US (occurrence: None)
  Receive Date: 20230522
  Receipt Date: 20230522
  Transmission Date: 20230721
  Serious: Yes (unspecified)
  Sender: FDA-Public Use
  Company Number: None

PATIENT
  Age: 51 Year
  Sex: Male
  Weight: 106.2 kg

DRUGS (4)
  1. VANCOMYCIN HYDROCHLORIDE [Suspect]
     Active Substance: VANCOMYCIN HYDROCHLORIDE
     Indication: Cellulitis
     Dosage: OTHER FREQUENCY : ONE DOSE;?
     Route: 041
     Dates: start: 20230521, end: 20230521
  2. CEFEPIME [Concomitant]
     Active Substance: CEFEPIME HYDROCHLORIDE
     Dates: start: 20230521, end: 20230521
  3. MORPHINE [Concomitant]
     Active Substance: MORPHINE
     Dates: start: 20230521, end: 20230521
  4. ZOFRAN [Concomitant]
     Active Substance: ONDANSETRON HYDROCHLORIDE
     Dates: start: 20230521, end: 20230521

REACTIONS (1)
  - Rash [None]

NARRATIVE: CASE EVENT DATE: 20230522
